FAERS Safety Report 14641352 (Version 2)
Quarter: 2018Q2

REPORT INFORMATION
  Report Type: Spontaneous
  Country: JP (occurrence: JP)
  Receive Date: 20180315
  Receipt Date: 20180413
  Transmission Date: 20180711
  Serious: Yes (Other)
  Sender: FDA-Public Use
  Company Number: PHJP2018JP005814

PATIENT
  Age: 49 Year
  Sex: Female

DRUGS (2)
  1. VAGOSTIGMIN [Concomitant]
     Indication: PRODUCT USED FOR UNKNOWN INDICATION
     Dosage: UNK
     Route: 048
  2. PATANOL [Suspect]
     Active Substance: OLOPATADINE HYDROCHLORIDE
     Indication: EYE ALLERGY
     Dosage: UNK
     Route: 047

REACTIONS (5)
  - Dysphagia [Unknown]
  - Respiration abnormal [Unknown]
  - Myasthenia gravis [Unknown]
  - Abnormal sensation in eye [Unknown]
  - Dysstasia [Recovering/Resolving]

NARRATIVE: CASE EVENT DATE: 20180307
